FAERS Safety Report 7804756-7 (Version None)
Quarter: 2011Q4

REPORT INFORMATION
  Report Type: 
  Country: None (occurrence: None)
  Receive Date: 20111010
  Receipt Date: 20110928
  Transmission Date: 20120403
  Serious: Yes (Other)
  Sender: FDA-Public Use
  Company Number: US-CELGENEUS-163-21880-11080061

PATIENT
  Sex: Female

DRUGS (20)
  1. REVLIMID [Suspect]
     Dosage: 25 MILLIGRAM
     Route: 048
     Dates: start: 20090401, end: 20100101
  2. MULTI-VITAMINS [Concomitant]
     Route: 065
  3. DOXYCYCLINE [Concomitant]
     Indication: BRONCHITIS
  4. BACTRIM [Concomitant]
     Route: 065
     Dates: start: 20110101
  5. JANUVIA [Concomitant]
     Dosage: 100 MILLIGRAM
     Route: 048
  6. HUMULIN R [Concomitant]
     Route: 065
  7. DOXYCYCLINE [Concomitant]
     Route: 065
     Dates: start: 20110101
  8. DECADRON [Concomitant]
     Dosage: 20 MILLIGRAM
     Route: 048
  9. HUMULIN N [Concomitant]
     Dosage: 15 UNITS
     Route: 065
  10. ASPIRIN [Concomitant]
     Dosage: 325 MILLIGRAM
     Route: 048
  11. GLIPIZIDE [Concomitant]
     Dosage: 15MGAM, 20MGPM
     Route: 048
  12. OMEPRAZOLE [Concomitant]
     Dosage: 20 MILLIGRAM
     Route: 048
  13. LISINOPRIL [Concomitant]
     Dosage: 10
     Route: 048
  14. ZITHROMAX [Concomitant]
     Indication: SINUSITIS
     Route: 065
     Dates: start: 20110101
  15. REVLIMID [Suspect]
     Dosage: 25 MILLIGRAM
     Route: 048
     Dates: start: 20110210, end: 20110601
  16. REVLIMID [Suspect]
     Dosage: 10 MILLIGRAM
     Route: 048
     Dates: start: 20110601
  17. LEVOTHYROXINE SODIUM [Concomitant]
     Route: 048
  18. SERTRALINE HYDROCHLORIDE [Concomitant]
     Dosage: 50 MILLIGRAM
     Route: 048
  19. METFORMIN HCL [Concomitant]
     Dosage: 500 MILLIGRAM
     Route: 048
  20. BACTRIM [Concomitant]
     Indication: BRONCHITIS

REACTIONS (4)
  - CARPAL TUNNEL SYNDROME [None]
  - DIARRHOEA [None]
  - CLOSTRIDIAL INFECTION [None]
  - PNEUMONIA [None]
